FAERS Safety Report 5605768-4 (Version None)
Quarter: 2008Q1

REPORT INFORMATION
  Report Type: 
  Country: None (occurrence: None)
  Receive Date: 20080129
  Receipt Date: 20080116
  Transmission Date: 20080703
  Serious: Yes (Other)
  Sender: FDA-Public Use
  Company Number: US-ROCHE-541548

PATIENT
  Age: 48 Year
  Sex: Male

DRUGS (2)
  1. ROFERON-A [Suspect]
     Route: 065
  2. DILAUDID [Concomitant]

REACTIONS (3)
  - DRUG INEFFECTIVE [None]
  - KYPHOSIS [None]
  - RESPIRATORY DISORDER [None]
